FAERS Safety Report 9248640 (Version 1)
Quarter: 2013Q1

REPORT INFORMATION
  Report Type: Spontaneous
  Country: US (occurrence: None)
  Receive Date: 20130305
  Receipt Date: 20130305
  Transmission Date: 20140127
  Serious: Yes (Other)
  Sender: FDA-Public Use
  Company Number: 163-21880-12091684 (0)

PATIENT
  Age: 66 Year
  Sex: Female
  Weight: 54.89 kg

DRUGS (18)
  1. REVLIMID [Suspect]
     Indication: PLASMA CELL MYELOMA
     Dosage: 21 IN 21 D
     Route: 048
     Dates: start: 200709
  2. VELCADE ( BORTEZOMIB) [Concomitant]
  3. DEXAMETHASONE (DEXAMETHASONE) [Concomitant]
  4. DOXIL (DOXORUBICIN  HYDROCHLORIDE) [Concomitant]
  5. BISPHOSPHONATE (IBISPHOSPHONATES) [Concomitant]
  6. ZOMETA (ZOLEDRONIC ACID) [Concomitant]
  7. FLUTICASONE (FLUTICASONE) [Concomitant]
  8. PANTOPRAZOLE  (PANTOPRAZOLE) [Concomitant]
  9. VITAMINS [Concomitant]
  10. CALCIUM + D (OS-CAL) [Concomitant]
  11. ASPIRIN (ACETYLSALICYLIC ACID) [Concomitant]
  12. POTASSIUM CHLORIDE (POOTASSIUM CHLORIDE) [Concomitant]
  13. PROCHLORPERAZINE (PROCHLORPERAZINE) [Concomitant]
  14. ONDANSETRON (ONDANSETRON) [Concomitant]
  15. CARFILZOMIB (CARFILZOMIB) [Concomitant]
  16. GABAPENTIN (GABAPENTIN) [Concomitant]
  17. PROTONIX [Concomitant]
  18. IMODIUM (LOPERAMIDE) [Concomitant]

REACTIONS (3)
  - Plasmacytoma [None]
  - Drug ineffective [None]
  - Haematotoxicity [None]
